FAERS Safety Report 24315750 (Version 3)
Quarter: 2024Q4

REPORT INFORMATION
  Report Type: Spontaneous
  Country: US (occurrence: US)
  Receive Date: 20240913
  Receipt Date: 20241001
  Transmission Date: 20250115
  Serious: No
  Sender: ABBVIE
  Company Number: US-ABBVIE-5920244

PATIENT
  Sex: Female

DRUGS (1)
  1. KYBELLA [Suspect]
     Active Substance: DEOXYCHOLIC ACID
     Indication: Arthropathy
     Dosage: LAST ADMIN DATE: 2021
     Route: 058
     Dates: start: 202106

REACTIONS (4)
  - Skin indentation [Unknown]
  - Drug ineffective [Recovered/Resolved]
  - Skin discolouration [Unknown]
  - Product administered at inappropriate site [Recovered/Resolved]

NARRATIVE: CASE EVENT DATE: 20210101
